FAERS Safety Report 4305814-4 (Version None)
Quarter: 2004Q1

REPORT INFORMATION
  Report Type: 
  Country: None (occurrence: None)
  Receive Date: 20040226
  Receipt Date: 20040226
  Transmission Date: 20041129
  Serious: Yes (Congenital Anomaly)
  Sender: FDA-Public Use
  Company Number: None

PATIENT
  Age: 59 Year
  Sex: Female
  Weight: 57.1532 kg

DRUGS (1)
  1. ZICAM LIQUID NASAL GEL MATRIXX, INC. [Suspect]
     Indication: NASOPHARYNGITIS
     Dosage: 1 SWAB EVERY 4 HO

REACTIONS (1)
  - ANOSMIA [None]
